FAERS Safety Report 11562632 (Version 1)
Quarter: 2015Q3

REPORT INFORMATION
  Report Type: Spontaneous
  Country: US (occurrence: US)
  Receive Date: 20150928
  Receipt Date: 20150928
  Transmission Date: 20151125
  Serious: No
  Sender: FDA-Public Use
  Company Number: US-GLAXOSMITHKLINE-US2015137459

PATIENT
  Sex: Female

DRUGS (9)
  1. TRAMADOL ER [Concomitant]
     Active Substance: TRAMADOL HYDROCHLORIDE
  2. MOBIC [Concomitant]
     Active Substance: MELOXICAM
  3. PLAQUENIL [Concomitant]
     Active Substance: HYDROXYCHLOROQUINE SULFATE
  4. VOLTAREN [Concomitant]
     Active Substance: DICLOFENAC SODIUM
  5. PERCOCET [Concomitant]
     Active Substance: ACETAMINOPHEN\OXYCODONE HYDROCHLORIDE
     Dosage: UNK, PRN
  6. LISINOPRIL. [Concomitant]
     Active Substance: LISINOPRIL
  7. SOMA [Concomitant]
     Active Substance: CARISOPRODOL
  8. BENLYSTA [Suspect]
     Active Substance: BELIMUMAB
     Dosage: UNK
     Route: 042
     Dates: start: 20150803
  9. AMITRIPTYLINE [Concomitant]
     Active Substance: AMITRIPTYLINE

REACTIONS (8)
  - Night sweats [Not Recovered/Not Resolved]
  - Hot flush [Not Recovered/Not Resolved]
  - Fatigue [Unknown]
  - Therapeutic response unexpected [Not Recovered/Not Resolved]
  - Peripheral coldness [Not Recovered/Not Resolved]
  - Cold sweat [Not Recovered/Not Resolved]
  - Flushing [Not Recovered/Not Resolved]
  - Feeling of body temperature change [Not Recovered/Not Resolved]

NARRATIVE: CASE EVENT DATE: 2015
